FAERS Safety Report 13515633 (Version 2)
Quarter: 2017Q2

REPORT INFORMATION
  Report Type: Spontaneous
  Country: GB (occurrence: GB)
  Receive Date: 20170504
  Receipt Date: 20170608
  Transmission Date: 20170830
  Serious: Yes (Other)
  Sender: FDA-Public Use
  Company Number: GB-ABBVIE-17P-167-1964202-00

PATIENT
  Age: 89 Year
  Sex: Male

DRUGS (1)
  1. PROSTAP 3 [Suspect]
     Active Substance: LEUPROLIDE ACETATE
     Indication: PROSTATOMEGALY
     Dosage: DCS 11.25MG, UNK
     Route: 065

REACTIONS (6)
  - Dyspnoea [Unknown]
  - Dry skin [Unknown]
  - Pulmonary fibrosis [Unknown]
  - Off label use [Unknown]
  - Peripheral swelling [Recovering/Resolving]
  - Product use in unapproved indication [Unknown]
